FAERS Safety Report 26132863 (Version 1)
Quarter: 2025Q4

REPORT INFORMATION
  Report Type: Report from Study
  Country: EU (occurrence: EU)
  Receive Date: 20251209
  Receipt Date: 20251209
  Transmission Date: 20260118
  Serious: Yes (Other)
  Sender: ABBVIE
  Company Number: EU-ABBVIE-6578319

PATIENT
  Sex: Female

DRUGS (1)
  1. FOSCARBIDOPA\FOSLEVODOPA [Suspect]
     Active Substance: FOSCARBIDOPA\FOSLEVODOPA
     Indication: Parkinson^s disease
     Route: 058
     Dates: start: 20250323

REACTIONS (6)
  - Infusion site necrosis [Recovering/Resolving]
  - Infusion site erythema [Recovering/Resolving]
  - Infusion site vesicles [Recovering/Resolving]
  - Infusion site discharge [Recovering/Resolving]
  - Infusion site injury [Recovering/Resolving]
  - Infusion site haemorrhage [Recovering/Resolving]

NARRATIVE: CASE EVENT DATE: 20251126
